FAERS Safety Report 22008766 (Version 2)
Quarter: 2023Q1

REPORT INFORMATION
  Report Type: Spontaneous
  Country: CN (occurrence: None)
  Receive Date: 20230219
  Receipt Date: 20230306
  Transmission Date: 20230417
  Serious: Yes (Death, Hospitalization, Other)
  Sender: FDA-Public Use
  Company Number: CN-ROCHE-3284986

PATIENT
  Age: 52 Year
  Sex: Male
  Weight: 77 kg

DRUGS (19)
  1. GAZYVA [Suspect]
     Active Substance: OBINUTUZUMAB
     Indication: Diffuse large B-cell lymphoma stage IV
     Dosage: OBINUTUZUMAB + CYTARABINE + DEXAMETHASONE
     Route: 065
     Dates: start: 20220712
  2. GAZYVA [Suspect]
     Active Substance: OBINUTUZUMAB
     Dosage: G-GEMOX REGIMEN
     Route: 065
     Dates: start: 20220805
  3. RITUXIMAB [Concomitant]
     Active Substance: RITUXIMAB
     Indication: Diffuse large B-cell lymphoma stage IV
     Dosage: R+DHAP REGIMEN, RITUXIMAB INJECTION 0.6G DAY0 + CYCLOPHOSPHAMIDE 1.2G DAY1 + DOXORUBICIN 60 MG DAY1
     Dates: start: 20220617
  4. CISPLATIN [Concomitant]
     Active Substance: CISPLATIN
     Indication: Diffuse large B-cell lymphoma stage IV
     Dosage: R+DHAP REGIMEN
     Dates: start: 20220617
  5. CYTARABINE [Concomitant]
     Active Substance: CYTARABINE
     Indication: Diffuse large B-cell lymphoma stage IV
     Dosage: R+DHAP REGIMEN
     Dates: start: 20220617
  6. CYTARABINE [Concomitant]
     Active Substance: CYTARABINE
     Dosage: OBINUTUZUMAB + CYTARABINE + DEXAMETHASONE
     Dates: start: 20220712
  7. CYTARABINE [Concomitant]
     Active Substance: CYTARABINE
     Dosage: BEAM REGIMEN
     Dates: start: 20221020
  8. DEXAMETHASONE [Concomitant]
     Active Substance: DEXAMETHASONE
     Indication: Diffuse large B-cell lymphoma stage IV
     Dosage: R + DHAP REGIMEN
     Dates: start: 20220717
  9. DEXAMETHASONE [Concomitant]
     Active Substance: DEXAMETHASONE
     Dosage: OBINUTUZUMAB + CYTARABINE + DEXAMETHASONE
     Dates: start: 20220712
  10. OXALIPLATIN [Concomitant]
     Active Substance: OXALIPLATIN
     Indication: Diffuse large B-cell lymphoma stage IV
     Dosage: G-GEMOX REGIMEN, D1
     Dates: start: 20220805
  11. GEMCITABINE [Concomitant]
     Active Substance: GEMCITABINE
     Indication: Diffuse large B-cell lymphoma stage IV
     Dosage: G-GEMOX, D1
     Dates: start: 20220805
  12. CARMUSTINE [Concomitant]
     Active Substance: CARMUSTINE
     Indication: Diffuse large B-cell lymphoma stage IV
     Dosage: BEAM REGIMEN
     Dates: start: 20221020
  13. ETOPOSIDE [Concomitant]
     Active Substance: ETOPOSIDE
     Indication: Diffuse large B-cell lymphoma stage IV
     Dosage: BEAM REGIMEN
     Dates: start: 20221020
  14. MELPHALAN [Concomitant]
     Active Substance: MELPHALAN
     Indication: Diffuse large B-cell lymphoma stage IV
     Dosage: BEAM REGIMEN
     Dates: start: 20221020
  15. RO-0622 [Concomitant]
     Active Substance: RO-0622
     Dosage: FOR 7 DAYS,
     Dates: start: 20221229
  16. HUMAN IMMUNOGLOBULIN G [Concomitant]
     Active Substance: HUMAN IMMUNOGLOBULIN G
     Dosage: FOR 6 DAYS.
     Dates: start: 20221229
  17. METHYLPREDNISOLONE [Concomitant]
     Active Substance: METHYLPREDNISOLONE
     Dates: start: 20221229
  18. MOXIFLOXACIN [Concomitant]
     Active Substance: MOXIFLOXACIN
     Indication: Anti-infective therapy
     Dates: start: 20221229
  19. CEFTAZIDIME [Concomitant]
     Active Substance: CEFTAZIDIME
     Indication: Anti-infective therapy
     Dates: start: 20221229

REACTIONS (11)
  - Myelosuppression [Unknown]
  - Pneumonia viral [Unknown]
  - Pyrexia [Unknown]
  - Off label use [Unknown]
  - Pneumonia [Unknown]
  - Septic shock [Unknown]
  - Hepatic function abnormal [Unknown]
  - Renal impairment [Unknown]
  - COVID-19 pneumonia [Fatal]
  - Platelet count decreased [Unknown]
  - Haemoglobin decreased [Unknown]

NARRATIVE: CASE EVENT DATE: 20230101
